FAERS Safety Report 9284114 (Version 2)
Quarter: 2013Q3

REPORT INFORMATION
  Report Type: Spontaneous
  Country: US (occurrence: US)
  Receive Date: 20130510
  Receipt Date: 20130717
  Transmission Date: 20140515
  Serious: Yes (Other)
  Sender: FDA-Public Use
  Company Number: US-PFIZER INC-2013143132

PATIENT
  Age: 43 Year
  Sex: Female

DRUGS (8)
  1. PRISTIQ [Suspect]
     Indication: DEPRESSION
     Dosage: 50 MG, 1X/DAY
     Route: 048
  2. ENALAPRIL [Concomitant]
     Indication: HYPERTENSION
     Dosage: 2.5 MG, 1X/DAY
     Route: 048
  3. CYCLOBENZAPRINE [Concomitant]
     Dosage: UNK
  4. HYDROCHLOROTHIAZIDE [Concomitant]
     Dosage: 25 MG, UNK
  5. IRON [Concomitant]
     Dosage: 28 MG, UNK
  6. HYDROXYZINE [Concomitant]
     Dosage: UNK
  7. LORAZEPAM [Concomitant]
     Dosage: UNK
  8. TRAZODONE [Concomitant]
     Dosage: UNK

REACTIONS (1)
  - Pulmonary mass [Not Recovered/Not Resolved]
